FAERS Safety Report 9526122 (Version 1)
Quarter: 2013Q3

REPORT INFORMATION
  Report Type: Report from Study
  Country: GB (occurrence: GB)
  Receive Date: 20130916
  Receipt Date: 20130916
  Transmission Date: 20140515
  Serious: Yes (Hospitalization)
  Sender: FDA-Public Use
  Company Number: GB-AMGEN-GBRCT2013064132

PATIENT
  Age: 49 Year
  Sex: Male

DRUGS (9)
  1. ETANERCEPT [Suspect]
     Indication: PRODUCT USED FOR UNKNOWN INDICATION
     Dosage: 50 MG, WEEKLY
     Route: 065
     Dates: start: 20121105, end: 20130410
  2. ETANERCEPT [Suspect]
     Dosage: 50MG ONCE WEEKLY
     Route: 065
     Dates: start: 20130715
  3. FUROSEMIDE [Concomitant]
     Dosage: UNK
     Dates: start: 19990701
  4. VITAMIN D                          /00107901/ [Concomitant]
     Dosage: UNK
     Dates: start: 19990701
  5. QUININE SULFATE [Concomitant]
     Dosage: UNK
     Dates: start: 19990701
  6. OMEPRAZOLE [Concomitant]
     Dosage: UNK
     Dates: start: 19990701
  7. SPIRONOLACTONE [Concomitant]
     Dosage: UNK
     Dates: start: 19990701
  8. RAMIPRIL [Concomitant]
     Dosage: UNK
     Dates: start: 20000701
  9. QUININE [Concomitant]
     Dosage: UNK
     Dates: start: 20120701

REACTIONS (2)
  - Wound infection [Recovered/Resolved]
  - Umbilical hernia [Recovered/Resolved]
